FAERS Safety Report 7090360-8 (Version None)
Quarter: 2010Q4

REPORT INFORMATION
  Report Type: 
  Country: None (occurrence: None)
  Receive Date: 20101012
  Receipt Date: 20100325
  Transmission Date: 20110411
  Serious: No
  Sender: FDA-Public Use
  Company Number: US-001279

PATIENT
  Sex: Female
  Weight: 53.8 kg

DRUGS (3)
  1. KUVAN [Suspect]
     Indication: PHENYLKETONURIA
     Dosage: (20 MG/KG QD ORAL)
     Route: 048
     Dates: start: 20090826, end: 20091201
  2. VITAMIN B-12 [Concomitant]
  3. IRON [Concomitant]

REACTIONS (1)
  - ABORTION SPONTANEOUS [None]
